FAERS Safety Report 10485273 (Version 1)
Quarter: 2014Q3

REPORT INFORMATION
  Report Type: Spontaneous
  Country: CA (occurrence: CA)
  Receive Date: 20140930
  Receipt Date: 20140930
  Transmission Date: 20150326
  Serious: Yes (Other)
  Sender: FDA-Public Use
  Company Number: CA-TEVA-511636USA

PATIENT
  Age: 17 Year
  Sex: Female

DRUGS (1)
  1. PLAN B [Suspect]
     Active Substance: LEVONORGESTREL
     Indication: POST COITAL CONTRACEPTION
     Dates: start: 20140905

REACTIONS (6)
  - Inappropriate schedule of drug administration [Unknown]
  - Vaginal discharge [Unknown]
  - Epistaxis [Unknown]
  - Mood swings [Unknown]
  - Fatigue [Unknown]
  - Haemorrhage [Recovered/Resolved]

NARRATIVE: CASE EVENT DATE: 201409
